FAERS Safety Report 4496931-7 (Version None)
Quarter: 2004Q3

REPORT INFORMATION
  Report Type: 
  Country: None (occurrence: None)
  Receive Date: 20040928
  Receipt Date: 20040721
  Transmission Date: 20050211
  Serious: No
  Sender: FDA-Public Use
  Company Number: 04P-163-0267789-00

PATIENT
  Age: 56 Year
  Sex: Female
  Weight: 50.3493 kg

DRUGS (6)
  1. HUMIRA [Suspect]
     Indication: RHEUMATOID ARTHRITIS
     Dosage: 40 MG, 1 IN 2 WK, SUBCUTANEOUS
     Route: 058
     Dates: start: 20040401
  2. CELECOXIB [Concomitant]
  3. TENORETIC 100 [Concomitant]
  4. ATENOLOL [Concomitant]
  5. METHOTREXATE [Concomitant]
  6. PREDNISONE [Concomitant]

REACTIONS (3)
  - BACK PAIN [None]
  - HYPOAESTHESIA [None]
  - PAIN IN EXTREMITY [None]
